FAERS Safety Report 8499275-1 (Version None)
Quarter: 2012Q3

REPORT INFORMATION
  Report Type: 
  Country: None (occurrence: None)
  Receive Date: 20120710
  Receipt Date: 20120702
  Transmission Date: 20120928
  Serious: Yes (Death, Hospitalization, Other)
  Sender: FDA-Public Use
  Company Number: AT-GENZYME-201021037GPV

PATIENT
  Age: 61 Year
  Sex: Male

DRUGS (13)
  1. DOXORUBICIN HCL [Suspect]
     Dosage: 46 MG, UNK
     Route: 042
     Dates: start: 20100222, end: 20100222
  2. VINCRISTINE [Suspect]
     Indication: T-CELL LYMPHOMA
     Dosage: 2 MG, UNK
     Route: 042
     Dates: start: 20100107, end: 20100107
  3. CYCLOPHOSPHAMIDE [Suspect]
     Indication: T-CELL LYMPHOMA
     Dosage: 1380 MG, UNK
     Route: 042
     Dates: start: 20100107, end: 20100107
  4. CYCLOPHOSPHAMIDE [Suspect]
     Dosage: 690 MG, UNK
     Route: 042
     Dates: start: 20100222, end: 20100222
  5. PEGFILGRASTIM [Suspect]
     Indication: T-CELL LYMPHOMA
     Dosage: 3 MG, QD
     Route: 058
  6. PREDNISONE [Suspect]
     Indication: T-CELL LYMPHOMA
     Dosage: 100 MG, UNK
     Route: 048
     Dates: start: 20100107, end: 20100111
  7. VINCRISTINE [Suspect]
     Dosage: 2 MG, UNK
     Route: 042
     Dates: start: 20100222, end: 20100222
  8. CAMPATH [Suspect]
     Indication: T-CELL LYMPHOMA
     Dosage: 30 MG, QD
     Route: 058
     Dates: start: 20100107, end: 20100108
  9. POSACONAZOLE [Suspect]
     Indication: PROPHYLAXIS
  10. CAMPATH [Suspect]
     Dosage: 30 MG, QD
     Route: 058
     Dates: start: 20100222, end: 20100223
  11. PREDNISONE [Suspect]
     Dosage: 100 MG, UNK
     Route: 048
     Dates: start: 20100222, end: 20100226
  12. PEGFILGRASTIM [Suspect]
     Dosage: 6 MG, QD
     Route: 058
     Dates: start: 20100301, end: 20100301
  13. DOXORUBICIN HCL [Suspect]
     Indication: T-CELL LYMPHOMA
     Dosage: 92 MG, UNK
     Route: 042
     Dates: start: 20100107, end: 20100107

REACTIONS (6)
  - BRONCHOPNEUMONIA [None]
  - SEPTIC SHOCK [None]
  - PSEUDOMONAL SEPSIS [None]
  - RESPIRATORY FAILURE [None]
  - TRACHEITIS [None]
  - FEBRILE NEUTROPENIA [None]
